FAERS Safety Report 4283372-0 (Version None)
Quarter: 2004Q1

REPORT INFORMATION
  Report Type: 
  Country: None (occurrence: None)
  Receive Date: 20040129
  Receipt Date: 20040122
  Transmission Date: 20041129
  Serious: Yes (Hospitalization)
  Sender: FDA-Public Use
  Company Number: 2003125114

PATIENT
  Age: 36 Year
  Sex: Female
  Weight: 65 kg

DRUGS (7)
  1. DIFLUCAN [Suspect]
     Indication: INFECTION
     Dosage: 200 MG (BID), ORAL
     Route: 048
     Dates: start: 20031025, end: 20031206
  2. FAMOTIDINE [Suspect]
     Indication: INFECTION
     Dosage: 40 MG (BID), ORAL
     Route: 048
     Dates: start: 20030930, end: 20031206
  3. BACTRIM [Suspect]
     Indication: INFECTION
     Dosage: (BID), ORAL
     Route: 048
     Dates: start: 20031025, end: 20031206
  4. URSODEOXYCHOLIC ACID [Concomitant]
  5. POLAPREZINC [Concomitant]
  6. STREPTOCOCCUS FAECALIS [Concomitant]
  7. PREDNISOLONE [Concomitant]

REACTIONS (4)
  - C-REACTIVE PROTEIN INCREASED [None]
  - NEUTROPENIA [None]
  - PYREXIA [None]
  - WHITE BLOOD CELL COUNT DECREASED [None]
